FAERS Safety Report 21023514 (Version 1)
Quarter: 2022Q2

REPORT INFORMATION
  Report Type: Spontaneous
  Country: GB (occurrence: None)
  Receive Date: 20220629
  Receipt Date: 20220629
  Transmission Date: 20220721
  Serious: Yes (Hospitalization, Other)
  Sender: FDA-Public Use
  Company Number: 2022A228574

PATIENT
  Age: 83 Year
  Sex: Male

DRUGS (1)
  1. DAPAGLIFLOZIN [Suspect]
     Active Substance: DAPAGLIFLOZIN
     Dosage: 10
     Route: 065
     Dates: start: 20220201, end: 20220615

REACTIONS (1)
  - Necrosis [Recovering/Resolving]

NARRATIVE: CASE EVENT DATE: 20220615
